FAERS Safety Report 4312754-3 (Version None)
Quarter: 2004Q1

REPORT INFORMATION
  Report Type: 
  Country: None (occurrence: None)
  Receive Date: 20040302
  Receipt Date: 20040120
  Transmission Date: 20041129
  Serious: No
  Sender: FDA-Public Use
  Company Number: WAES 0401USA01564

PATIENT
  Age: 48 Year
  Sex: Male
  Weight: 59.4212 kg

DRUGS (5)
  1. CANCIDAS [Suspect]
     Indication: OESOPHAGEAL CANDIDIASIS
     Dosage: 50 MG/DAILY/IV
     Route: 042
     Dates: start: 20031120, end: 20031130
  2. BACTRIM DS [Concomitant]
  3. NEURONTIN [Concomitant]
  4. OXYCONTIN [Concomitant]
  5. ZOFRAN [Concomitant]

REACTIONS (2)
  - PYREXIA [None]
  - RASH [None]
